FAERS Safety Report 4299587-1 (Version None)
Quarter: 2004Q1

REPORT INFORMATION
  Report Type: 
  Country: None (occurrence: None)
  Receive Date: 20040217
  Receipt Date: 20040202
  Transmission Date: 20041129
  Serious: No
  Sender: FDA-Public Use
  Company Number: 04H-144-0249776-00

PATIENT
  Age: 13 Year
  Sex: Male
  Weight: 50 kg

DRUGS (4)
  1. VECURONIUM BROMIDE [Suspect]
     Indication: NEUROMUSCULAR BLOCKADE
     Dosage: 0.1 MG/KG/HR, INFUSION, INTRAVENOUS;  0.1 MG/KG, ONCE, INTRAVENOUS BOLUS
     Route: 042
  2. METHYLPREDNISOLONE [Suspect]
     Indication: ASTHMA
     Dosage: ^HIGH DOSE^, INTRAVENOUS
     Route: 042
  3. MIDAZOLAM HCL [Concomitant]
  4. FENTANYL [Concomitant]

REACTIONS (2)
  - MYOPATHY [None]
  - QUADRIPLEGIA [None]
